FAERS Safety Report 12964294 (Version 3)
Quarter: 2019Q2

REPORT INFORMATION
  Report Type: Spontaneous
  Country: US (occurrence: US)
  Receive Date: 20161122
  Receipt Date: 20190507
  Transmission Date: 20190711
  Serious: No
  Sender: FDA-Public Use
  Company Number: US-PFIZER INC-2016538990

PATIENT
  Age: 53 Year
  Sex: Female

DRUGS (1)
  1. LYRICA [Suspect]
     Active Substance: PREGABALIN
     Dosage: 100 MG, 2X/DAY(1 CAPSULE PO MAXIMUM DAILY DOSE: 4, 2 IN THE AM, 2 IN THE PM)
     Route: 048

REACTIONS (2)
  - Pain [Unknown]
  - Condition aggravated [Unknown]
